FAERS Safety Report 10472758 (Version 3)
Quarter: 2015Q2

REPORT INFORMATION
  Report Type: Spontaneous
  Country: US (occurrence: US)
  Receive Date: 20140924
  Receipt Date: 20150618
  Transmission Date: 20150821
  Serious: Yes (Hospitalization, Other)
  Sender: FDA-Public Use
  Company Number: US-009507513-1409USA010721

PATIENT
  Sex: Male
  Weight: 67.12 kg

DRUGS (1)
  1. JANUMET [Suspect]
     Active Substance: METFORMIN HYDROCHLORIDE\SITAGLIPTIN PHOSPHATE
     Indication: TYPE 2 DIABETES MELLITUS
     Dosage: 50/1000 MG, BID
     Route: 048
     Dates: start: 2006, end: 20120202

REACTIONS (4)
  - Gastric disorder [Unknown]
  - Pancreatic carcinoma [Unknown]
  - Myocardial infarction [Unknown]
  - Pancreatectomy [Unknown]

NARRATIVE: CASE EVENT DATE: 2006
